FAERS Safety Report 13105704 (Version 2)
Quarter: 2017Q1

REPORT INFORMATION
  Report Type: Spontaneous
  Country: US (occurrence: US)
  Receive Date: 20170111
  Receipt Date: 20170321
  Transmission Date: 20170428
  Serious: Yes (Hospitalization, Other)
  Sender: FDA-Public Use
  Company Number: US-PFIZER INC-2017011614

PATIENT
  Age: 55 Year
  Sex: Male
  Weight: 92 kg

DRUGS (4)
  1. CYMBALTA [Concomitant]
     Active Substance: DULOXETINE HYDROCHLORIDE
     Indication: NEUROPATHY PERIPHERAL
     Dosage: ONE A DAY
  2. LYRICA [Suspect]
     Active Substance: PREGABALIN
     Indication: NEUROPATHY PERIPHERAL
     Dosage: 100 MG, 3X/DAY
     Route: 048
  3. LEVEMIR [Concomitant]
     Active Substance: INSULIN DETEMIR
     Indication: DIABETES MELLITUS
     Dosage: 65 UNITS TWICE A TODAY ON LEVEMIR AND NOVOLOG, IT VARIES, AROUND ^6-8 UNITS^
  4. NOVOLOG [Concomitant]
     Active Substance: INSULIN ASPART
     Indication: DIABETES MELLITUS
     Dosage: 65 UNITS TWICE A TODAY ON LEVEMIR AND NOVOLOG, IT VARIES, AROUND ^6-8 UNITS^.

REACTIONS (4)
  - Cellulitis [Unknown]
  - Localised infection [Recovered/Resolved]
  - Injury [Unknown]
  - Peripheral swelling [Unknown]
